FAERS Safety Report 17868630 (Version 1)
Quarter: 2020Q2

REPORT INFORMATION
  Report Type: Report from Study
  Country: EG (occurrence: EG)
  Receive Date: 20200606
  Receipt Date: 20200606
  Transmission Date: 20200714
  Serious: Yes (Other)
  Sender: FDA-Public Use
  Company Number: NVSC2020EG157560

PATIENT
  Age: 53 Year
  Sex: Female

DRUGS (3)
  1. GLIVEC [Suspect]
     Active Substance: IMATINIB MESYLATE
     Indication: CHRONIC MYELOID LEUKAEMIA
     Dosage: 4 DF, QD
     Route: 048
     Dates: start: 2015
  2. SOLUPRED [Concomitant]
     Indication: PRODUCT USED FOR UNKNOWN INDICATION
     Dosage: 2 DF, QD INTERMITTENTLY
     Route: 065
  3. GAPTIN [Concomitant]
     Indication: PRODUCT USED FOR UNKNOWN INDICATION
     Dosage: 1 DF, QD
     Route: 065

REACTIONS (11)
  - Hepatic enzyme increased [Recovering/Resolving]
  - Nasopharyngitis [Not Recovered/Not Resolved]
  - Muscle spasms [Recovering/Resolving]
  - Ligament rupture [Recovering/Resolving]
  - Gastroenteritis [Not Recovered/Not Resolved]
  - Immunodeficiency [Not Recovered/Not Resolved]
  - Pain [Recovering/Resolving]
  - Cholelithiasis [Not Recovered/Not Resolved]
  - Hepatomegaly [Recovering/Resolving]
  - Renal impairment [Recovering/Resolving]
  - Fall [Recovering/Resolving]

NARRATIVE: CASE EVENT DATE: 2015
